FAERS Safety Report 12066266 (Version 1)
Quarter: 2016Q1

REPORT INFORMATION
  Report Type: Spontaneous
  Country: US (occurrence: None)
  Receive Date: 20160210
  Receipt Date: 20160210
  Transmission Date: 20160526
  Serious: Yes (Life-Threatening)
  Sender: FDA-Public Use
  Company Number: None

PATIENT
  Age: 62 Year
  Sex: Female
  Weight: 86.18 kg

DRUGS (1)
  1. LEVAQUIN [Suspect]
     Active Substance: LEVOFLOXACIN
     Indication: BRONCHITIS
     Route: 048
     Dates: start: 20160102, end: 20160108

REACTIONS (10)
  - Pain in extremity [None]
  - Heart rate increased [None]
  - Chest discomfort [None]
  - Feeling abnormal [None]
  - Dizziness [None]
  - Hypoaesthesia [None]
  - Headache [None]
  - Dehydration [None]
  - Blood electrolytes abnormal [None]
  - Cough [None]

NARRATIVE: CASE EVENT DATE: 20160108
